FAERS Safety Report 16921809 (Version 1)
Quarter: 2019Q4

REPORT INFORMATION
  Report Type: Spontaneous
  Country: US (occurrence: US)
  Receive Date: 20191015
  Receipt Date: 20191015
  Transmission Date: 20200122
  Serious: Yes (Death)
  Sender: FDA-Public Use
  Company Number: US-NEXGEN PHARMA, INC.-2075665

PATIENT
  Age: 6 Month
  Sex: Male

DRUGS (1)
  1. CHOLBAM [Suspect]
     Active Substance: CHOLIC ACID
     Indication: CONGENITAL ANOMALY
     Route: 048
     Dates: start: 20190505

REACTIONS (1)
  - Death [Fatal]
